FAERS Safety Report 22102907 (Version 5)
Quarter: 2024Q1

REPORT INFORMATION
  Report Type: Spontaneous
  Country: US (occurrence: US)
  Receive Date: 20230316
  Receipt Date: 20240212
  Transmission Date: 20240409
  Serious: Yes (Death, Other)
  Sender: FDA-Public Use
  Company Number: US-PFIZER INC-PV202300049597

PATIENT
  Age: 87 Year
  Sex: Female

DRUGS (1)
  1. VYNDAMAX [Suspect]
     Active Substance: TAFAMIDIS
     Indication: Cardiac amyloidosis
     Dosage: 61MG 1 CAPSULE BY MOUTH DAILY
     Route: 048
     Dates: start: 2023, end: 20231231

REACTIONS (5)
  - Sepsis [Fatal]
  - Bacterial infection [Fatal]
  - COVID-19 [Fatal]
  - Deafness [Unknown]
  - Gait disturbance [Unknown]

NARRATIVE: CASE EVENT DATE: 20231231
